FAERS Safety Report 6288431-9 (Version None)
Quarter: 2009Q3

REPORT INFORMATION
  Report Type: 
  Country: None (occurrence: None)
  Receive Date: 20090729
  Receipt Date: 20090721
  Transmission Date: 20100115
  Serious: Yes (Hospitalization)
  Sender: FDA-Public Use
  Company Number: A0798982B

PATIENT
  Age: 75 Year
  Sex: Male
  Weight: 68.9 kg

DRUGS (5)
  1. TOPOTECAN [Suspect]
     Indication: NON-SMALL CELL LUNG CANCER
     Dosage: 7.25MG CYCLIC
     Route: 042
     Dates: start: 20060412
  2. DECADRON [Concomitant]
  3. ALOXI [Concomitant]
  4. D5NS [Concomitant]
  5. ARANESP [Concomitant]

REACTIONS (5)
  - ASTHENIA [None]
  - DIARRHOEA [None]
  - EATING DISORDER [None]
  - FEBRILE NEUTROPENIA [None]
  - HYPOVOLAEMIA [None]
